FAERS Safety Report 10713019 (Version 1)
Quarter: 2015Q1

REPORT INFORMATION
  Report Type: Spontaneous
  Country: US (occurrence: None)
  Receive Date: 20150114
  Receipt Date: 20150114
  Transmission Date: 20150721
  Serious: Yes (Life-Threatening, Hospitalization, Disabling, Other)
  Sender: FDA-Public Use
  Company Number: None

PATIENT
  Sex: Male
  Weight: 77.11 kg

DRUGS (1)
  1. RISPERDAL CONSTA [Suspect]
     Active Substance: RISPERIDONE
     Indication: SCHIZOPHRENIA, PARANOID TYPE
     Dosage: 25 MG EVERY 2 WEEKS INTO THE MUSCLE
     Route: 030

REACTIONS (5)
  - Ejaculation failure [None]
  - Unevaluable event [None]
  - Erectile dysfunction [None]
  - Hypothyroidism [None]
  - Suicidal ideation [None]
